FAERS Safety Report 17192576 (Version 3)
Quarter: 2020Q1

REPORT INFORMATION
  Report Type: Report from Study
  Country: None (occurrence: US)
  Receive Date: 20191223
  Receipt Date: 20200123
  Transmission Date: 20200409
  Serious: Yes (Hospitalization)
  Sender: FDA-Public Use
  Company Number: US-ABBVIE-19K-163-3200561-00

PATIENT
  Age: 69 Year
  Sex: Female
  Weight: 84.44 kg

DRUGS (7)
  1. SKYRIZI [Suspect]
     Active Substance: RISANKIZUMAB-RZAA
     Indication: PSORIASIS
     Dosage: WEEK 0
     Route: 058
     Dates: start: 20191023, end: 2019
  2. SKYRIZI [Suspect]
     Active Substance: RISANKIZUMAB-RZAA
     Dosage: 2 SYRINGES EVERY 12 WKS STARTING ON 16WK
     Route: 058
     Dates: start: 20191120, end: 2019
  3. POTASSIUM [Concomitant]
     Active Substance: POTASSIUM
     Indication: PRODUCT USED FOR UNKNOWN INDICATION
     Dosage: TWICE A DAY?10 MEQ?SUPPLEMENT
     Route: 065
  4. HUMIRA [Suspect]
     Active Substance: ADALIMUMAB
     Indication: PSORIASIS
     Route: 058
  5. HYDROCHLOROTHIAZIDE/LORARTAN [Concomitant]
     Indication: HYPERTENSION
     Dosage: 25MG/100MG
     Route: 048
  6. MAGNESIUM [Concomitant]
     Active Substance: MAGNESIUM
     Indication: PRODUCT USED FOR UNKNOWN INDICATION
     Route: 065
  7. SKYRIZI [Suspect]
     Active Substance: RISANKIZUMAB-RZAA
     Route: 058
     Dates: start: 20191211

REACTIONS (22)
  - Dry skin [Unknown]
  - Erythema [Not Recovered/Not Resolved]
  - Psoriasis [Recovered/Resolved]
  - Blood pressure decreased [Not Recovered/Not Resolved]
  - Skin exfoliation [Not Recovered/Not Resolved]
  - Dehydration [Not Recovered/Not Resolved]
  - Peripheral swelling [Unknown]
  - Drug ineffective [Recovered/Resolved]
  - Alopecia [Not Recovered/Not Resolved]
  - Skin texture abnormal [Unknown]
  - Skin reaction [Unknown]
  - Otorrhoea [Not Recovered/Not Resolved]
  - Rash [Not Recovered/Not Resolved]
  - Weight decreased [Not Recovered/Not Resolved]
  - Eye discharge [Not Recovered/Not Resolved]
  - Chills [Not Recovered/Not Resolved]
  - Joint swelling [Unknown]
  - Drug hypersensitivity [Not Recovered/Not Resolved]
  - Skin odour abnormal [Unknown]
  - Eye swelling [Unknown]
  - Sticky skin [Not Recovered/Not Resolved]
  - Pruritus [Not Recovered/Not Resolved]

NARRATIVE: CASE EVENT DATE: 2019
